APPROVED DRUG PRODUCT: POTASSIUM CHLORIDE
Active Ingredient: POTASSIUM CHLORIDE
Strength: 10MEQ
Dosage Form/Route: CAPSULE, EXTENDED RELEASE;ORAL
Application: A200185 | Product #002 | TE Code: AB
Applicant: PADAGIS US LLC
Approved: May 18, 2011 | RLD: No | RS: No | Type: RX